FAERS Safety Report 11111778 (Version 1)
Quarter: 2015Q2

REPORT INFORMATION
  Report Type: Spontaneous
  Country: FR (occurrence: FR)
  Receive Date: 20150514
  Receipt Date: 20150514
  Transmission Date: 20150821
  Serious: Yes (Hospitalization)
  Sender: FDA-Public Use
  Company Number: FR-ROCHE-1577517

PATIENT
  Age: 60 Year
  Sex: Female

DRUGS (5)
  1. TYVERB [Concomitant]
     Active Substance: LAPATINIB
     Route: 048
  2. TARDYFERON (FRANCE) [Concomitant]
  3. TYVERB [Concomitant]
     Active Substance: LAPATINIB
     Route: 065
     Dates: start: 20150112
  4. XELODA [Suspect]
     Active Substance: CAPECITABINE
     Indication: PRODUCT USED FOR UNKNOWN INDICATION
     Route: 048
     Dates: start: 201406, end: 20141211
  5. TYVERB [Concomitant]
     Active Substance: LAPATINIB
     Route: 065
     Dates: start: 20141218

REACTIONS (2)
  - Loss of consciousness [Recovered/Resolved]
  - Hypophosphataemia [Recovered/Resolved]

NARRATIVE: CASE EVENT DATE: 20141227
